FAERS Safety Report 18935907 (Version 2)
Quarter: 2021Q1

REPORT INFORMATION
  Report Type: Report from Study
  Country: None (occurrence: CO)
  Receive Date: 20210225
  Receipt Date: 20210227
  Transmission Date: 20210420
  Serious: Yes (Other)
  Sender: FDA-Public Use
  Company Number: CO-ABBVIE-21K-036-3786438-00

PATIENT
  Sex: Male
  Weight: 63 kg

DRUGS (2)
  1. HUMIRA [Suspect]
     Active Substance: ADALIMUMAB
     Indication: ANKYLOSING SPONDYLITIS
     Route: 058
  2. HUMIRA [Suspect]
     Active Substance: ADALIMUMAB
     Indication: ANKYLOSING SPONDYLITIS
     Route: 058
     Dates: start: 20121001

REACTIONS (5)
  - Amnesia [Recovering/Resolving]
  - Noninfective gingivitis [Recovering/Resolving]
  - Tooth disorder [Recovering/Resolving]
  - Schizophrenia [Recovering/Resolving]
  - Gingival pain [Recovering/Resolving]
